FAERS Safety Report 15466855 (Version 1)
Quarter: 2018Q4

REPORT INFORMATION
  Report Type: Spontaneous
  Country: US (occurrence: US)
  Receive Date: 20181005
  Receipt Date: 20181005
  Transmission Date: 20190204
  Serious: Yes (Death, Other)
  Sender: FDA-Public Use
  Company Number: US-UNICHEM PHARMACEUTICALS (USA) INC-UCM201809-000255

PATIENT
  Age: 65 Year
  Sex: Female

DRUGS (1)
  1. METRONIDAZOLE. [Suspect]
     Active Substance: METRONIDAZOLE
     Indication: CHOLECYSTITIS

REACTIONS (3)
  - Encephalopathy [Fatal]
  - Toxicity to various agents [Not Recovered/Not Resolved]
  - Coma scale abnormal [Not Recovered/Not Resolved]
